FAERS Safety Report 9261301 (Version 1)
Quarter: 2013Q2

REPORT INFORMATION
  Report Type: Spontaneous
  Country: US (occurrence: US)
  Receive Date: 20130429
  Receipt Date: 20130429
  Transmission Date: 20140414
  Serious: Yes (Death, Congenital Anomaly, Other)
  Sender: FDA-Public Use
  Company Number: US-PFIZER INC-2013130017

PATIENT
  Sex: Female

DRUGS (1)
  1. ZOLOFT [Suspect]
     Indication: DEPRESSION
     Dosage: UNK
     Route: 064
     Dates: start: 2004, end: 201004

REACTIONS (9)
  - Foetal exposure during pregnancy [Fatal]
  - Heart disease congenital [Fatal]
  - Heart disease congenital [Fatal]
  - Cerebral haemorrhage [Fatal]
  - Renal failure acute [Fatal]
  - Congenital pulmonary hypertension [Fatal]
  - Convulsion [Fatal]
  - Congenital nephrogenic diabetes insipidus [Fatal]
  - Encephalomalacia [Fatal]
